FAERS Safety Report 22126237 (Version 1)
Quarter: 2023Q1

REPORT INFORMATION
  Report Type: Spontaneous
  Country: US (occurrence: US)
  Receive Date: 20230322
  Receipt Date: 20230322
  Transmission Date: 20230418
  Serious: No
  Sender: FDA-Public Use
  Company Number: US-ALLERGAN-2225456US

PATIENT
  Sex: Female

DRUGS (1)
  1. LUMIGAN [Suspect]
     Active Substance: BIMATOPROST
     Indication: Product used for unknown indication

REACTIONS (2)
  - Product dose omission issue [Unknown]
  - Product packaging quantity issue [Unknown]
